FAERS Safety Report 18826456 (Version 2)
Quarter: 2021Q1

REPORT INFORMATION
  Report Type: Spontaneous
  Country: FR (occurrence: FR)
  Receive Date: 20210202
  Receipt Date: 20210211
  Transmission Date: 20210419
  Serious: Yes (Death)
  Sender: FDA-Public Use
  Company Number: FR-TEVA-2021-FR-1874514

PATIENT
  Age: 57 Year
  Sex: Male
  Weight: 58 kg

DRUGS (3)
  1. NEVIRAPINE. [Suspect]
     Active Substance: NEVIRAPINE
     Indication: HIV TEST POSITIVE
     Route: 065
  2. SILDENAFIL. [Suspect]
     Active Substance: SILDENAFIL
     Indication: PRODUCT USED FOR UNKNOWN INDICATION
     Route: 065
  3. BROMAZEPAM [Suspect]
     Active Substance: BROMAZEPAM
     Indication: PRODUCT USED FOR UNKNOWN INDICATION
     Route: 065

REACTIONS (11)
  - Cardiac disorder [Fatal]
  - Ventricular dysfunction [Fatal]
  - Hypoxia [Fatal]
  - Cyanosis [Fatal]
  - Pulmonary oedema [Fatal]
  - Petechiae [Fatal]
  - Hepatic steatosis [Fatal]
  - Conjunctival hyperaemia [Fatal]
  - Congestive hepatopathy [Fatal]
  - Multi-organ disorder [Fatal]
  - Toxicity to various agents [Fatal]
